FAERS Safety Report 12503801 (Version 1)
Quarter: 2016Q2

REPORT INFORMATION
  Report Type: Spontaneous
  Country: US (occurrence: None)
  Receive Date: 20160627
  Receipt Date: 20160627
  Transmission Date: 20160815
  Serious: Yes (Other)
  Sender: FDA-Public Use
  Company Number: None

PATIENT
  Age: 37 Year
  Sex: Male
  Weight: 81.65 kg

DRUGS (1)
  1. NASAL DECONGESTANT VAPOR INHALER, 50 MG WALGREENS [Suspect]
     Active Substance: LEVMETAMFETAMINE
     Indication: NASAL CONGESTION
     Dosage: 1 INHALER DEVICE 2 INH Q2H EACH NOSTRIL
     Route: 055
     Dates: start: 20140715, end: 20150401

REACTIONS (3)
  - Product label issue [None]
  - Imprisonment [None]
  - Drug screen false positive [None]

NARRATIVE: CASE EVENT DATE: 20141029
